FAERS Safety Report 5357911-2 (Version None)
Quarter: 2007Q2

REPORT INFORMATION
  Report Type: 
  Country: None (occurrence: None)
  Receive Date: 20070612
  Receipt Date: 20070531
  Transmission Date: 20071010
  Serious: Yes (Other)
  Sender: FDA-Public Use
  Company Number: 234435K07USA

PATIENT
  Age: 56 Year
  Sex: Female

DRUGS (5)
  1. REBIF [Suspect]
     Indication: MULTIPLE SCLEROSIS
     Dosage: 8.8 MCG
     Dates: start: 20070307, end: 20070101
  2. REBIF [Suspect]
     Dosage: 44 MCG, 3 IN 1 WEEKS, SUBCUTANEOUS
     Route: 058
     Dates: start: 20070101
  3. REQUIP [Concomitant]
  4. PAXIL [Concomitant]
  5. HORMONE REPLACEMENT THERAPY                 (HORMONES AND RELATED AGEN [Concomitant]

REACTIONS (6)
  - CONDITION AGGRAVATED [None]
  - DEPRESSION [None]
  - ERYTHEMA [None]
  - LACERATION [None]
  - POSTMENOPAUSAL HAEMORRHAGE [None]
  - WOUND [None]
